FAERS Safety Report 4324606-3 (Version None)
Quarter: 2004Q1

REPORT INFORMATION
  Report Type: 
  Country: None (occurrence: None)
  Receive Date: 20040325
  Receipt Date: 20040325
  Transmission Date: 20041129
  Serious: Yes (Congenital Anomaly)
  Sender: FDA-Public Use
  Company Number: None

PATIENT
  Sex: Male
  Weight: 3.1752 kg

DRUGS (2)
  1. KEPPRA [Suspect]
     Indication: CONVULSION
     Dosage: 1000 MG BID
  2. KEPPRA [Suspect]
     Indication: DRUG EXPOSURE DURING PREGNANCY
     Dosage: 1000 MG BID

REACTIONS (3)
  - EAR MALFORMATION [None]
  - MATERNAL DRUGS AFFECTING FOETUS [None]
  - MICROTIA [None]
